FAERS Safety Report 6413094-9 (Version None)
Quarter: 2009Q4

REPORT INFORMATION
  Report Type: 
  Country: None (occurrence: None)
  Receive Date: 20091026
  Receipt Date: 20091019
  Transmission Date: 20100525
  Serious: Yes (Death, Hospitalization)
  Sender: FDA-Public Use
  Company Number: ES-BAYER-200936121GPV

PATIENT
  Age: 75 Year
  Sex: Female
  Weight: 44 kg

DRUGS (20)
  1. SORAFENIB OR PLACEBO [Suspect]
     Indication: COLORECTAL CANCER METASTATIC
     Dosage: TOTAL DAILY DOSE: 800 MG  UNIT DOSE: 200 MG
     Route: 048
     Dates: start: 20091005, end: 20091001
  2. OXALIPLATIN [Suspect]
     Indication: COLORECTAL CANCER METASTATIC
     Dosage: 117.30
     Route: 042
     Dates: start: 20091005, end: 20091005
  3. LEUCOVORIN CALCIUM [Suspect]
     Indication: COLORECTAL CANCER STAGE IV
     Dosage: 522.00
     Route: 042
     Dates: start: 20091005, end: 20091005
  4. FLUOROURACIL [Suspect]
     Indication: COLORECTAL CANCER METASTATIC
     Dosage: 552
     Route: 040
     Dates: start: 20091005, end: 20091005
  5. FLUOROURACIL [Suspect]
     Dosage: 3312
     Route: 041
     Dates: start: 20091005, end: 20091007
  6. PARACETAMOL [Concomitant]
     Indication: PAIN
     Dates: start: 20090928, end: 20091013
  7. IBUPROFENO [Concomitant]
     Indication: PAIN
     Dates: start: 20090928, end: 20091013
  8. OMEPRAZOLE [Concomitant]
     Indication: PROPHYLAXIS AGAINST GASTROINTESTINAL ULCER
     Dates: start: 20090928, end: 20091013
  9. PRIMPERAN [Concomitant]
     Indication: NAUSEA
     Dates: start: 20090928, end: 20091015
  10. TARDYFERON [Concomitant]
     Indication: ANAEMIA
     Dates: start: 20090928, end: 20091013
  11. BLOOD TRANSFUSION [Concomitant]
     Indication: PANCYTOPENIA
     Dosage: 2
     Route: 042
     Dates: start: 20091013, end: 20091013
  12. PANTOPRAZOL [Concomitant]
     Indication: PROPHYLAXIS
     Route: 042
     Dates: start: 20091013, end: 20091015
  13. PERFALGAN [Concomitant]
     Indication: PAIN
     Route: 042
     Dates: start: 20091013, end: 20091015
  14. NEUPOGEN [Concomitant]
     Indication: PANCYTOPENIA
     Route: 058
     Dates: start: 20091013, end: 20091015
  15. DOPAMINE HYDROCHLORIDE [Concomitant]
     Indication: HYPOTENSION
     Route: 042
     Dates: start: 20091014, end: 20091014
  16. MORPHINE HCL ELIXIR [Concomitant]
     Indication: PAIN
     Route: 042
     Dates: start: 20091015, end: 20091015
  17. MIDAZOLAM HYDROCHLORIDE [Concomitant]
     Indication: PAIN
     Route: 042
     Dates: start: 20091015, end: 20091015
  18. FLUCONATOL [Concomitant]
     Indication: MUCOSAL INFLAMMATION
     Route: 042
     Dates: start: 20091014, end: 20091015
  19. URBASON [Concomitant]
     Indication: MUCOSAL INFLAMMATION
     Route: 042
     Dates: start: 20091014, end: 20091015
  20. CIPROFLOXACIN [Concomitant]
     Indication: MUCOSAL INFLAMMATION
     Route: 042
     Dates: start: 20091014, end: 20091015

REACTIONS (4)
  - DIARRHOEA [None]
  - MUCOSAL INFLAMMATION [None]
  - PANCYTOPENIA [None]
  - RENAL FAILURE [None]
